FAERS Safety Report 5157618-0 (Version None)
Quarter: 2006Q4

REPORT INFORMATION
  Report Type: 
  Country: None (occurrence: None)
  Receive Date: 20061115
  Receipt Date: 20061107
  Transmission Date: 20070319
  Serious: Yes (Other)
  Sender: FDA-Public Use
  Company Number: 163-21880-0110431

PATIENT
  Sex: Male

DRUGS (1)
  1. REVLIMID [Suspect]
     Indication: MULTIPLE MYELOMA
     Dosage: 25 MG, DAILY ORAL
     Route: 048
     Dates: start: 20060331, end: 20061001

REACTIONS (4)
  - EJACULATION DISORDER [None]
  - EYE OPERATION [None]
  - MUSCLE SPASMS [None]
  - SKIN DISCOLOURATION [None]
